FAERS Safety Report 20201278 (Version 1)
Quarter: 2021Q4

REPORT INFORMATION
  Report Type: Spontaneous
  Country: US (occurrence: None)
  Receive Date: 20211217
  Receipt Date: 20211217
  Transmission Date: 20220303
  Serious: No
  Sender: FDA-Public Use
  Company Number: None

PATIENT
  Age: 36 Year
  Sex: Male

DRUGS (6)
  1. CABENUVA [Suspect]
     Active Substance: CABOTEGRAVIR\RILPIVIRINE
     Indication: HIV test positive
     Dosage: OTHER FREQUENCY : ONCE MONTHLY;?
     Route: 030
     Dates: start: 20211126
  2. Viagra 100mg prn [Concomitant]
  3. OTC multivitamin daily [Concomitant]
  4. OTC vitamin D daily [Concomitant]
  5. OTC Vit B-12 daily [Concomitant]
  6. OTC probiotic daily [Concomitant]

REACTIONS (1)
  - Incorrect dose administered [None]

NARRATIVE: CASE EVENT DATE: 20211126
